FAERS Safety Report 16248933 (Version 1)
Quarter: 2019Q2

REPORT INFORMATION
  Report Type: Spontaneous
  Country: FR (occurrence: FR)
  Receive Date: 20190429
  Receipt Date: 20190429
  Transmission Date: 20190711
  Serious: Yes (Hospitalization)
  Sender: FDA-Public Use
  Company Number: FR-ACCORD-124568

PATIENT
  Age: 51 Year
  Sex: Female
  Weight: 48 kg

DRUGS (6)
  1. PRIMPERAN [Concomitant]
     Active Substance: METOCLOPRAMIDE HYDROCHLORIDE
  2. ZOPHREN [Concomitant]
     Active Substance: ONDANSETRON
  3. FLUOROURACIL. [Suspect]
     Active Substance: FLUOROURACIL
     Indication: OVARIAN EPITHELIAL CANCER
     Route: 042
     Dates: start: 20170529, end: 20180117
  4. OXALIPLATIN. [Suspect]
     Active Substance: OXALIPLATIN
     Indication: OVARIAN EPITHELIAL CANCER
     Route: 042
     Dates: start: 20170529, end: 20180117
  5. AERIUS [Concomitant]
  6. FOLINIC ACID [Concomitant]
     Active Substance: LEUCOVORIN

REACTIONS (5)
  - Leukopenia [Recovered/Resolved]
  - Epistaxis [Recovered/Resolved]
  - Neutropenia [Recovered/Resolved]
  - Off label use [Unknown]
  - Thrombocytopenia [Recovered/Resolved]

NARRATIVE: CASE EVENT DATE: 201801
